FAERS Safety Report 9338289 (Version 1)
Quarter: 2013Q2

REPORT INFORMATION
  Report Type: Spontaneous
  Country: SE (occurrence: SE)
  Receive Date: 20130610
  Receipt Date: 20130610
  Transmission Date: 20140414
  Serious: Yes (Hospitalization)
  Sender: FDA-Public Use
  Company Number: SE-ROCHE-1231759

PATIENT
  Age: 35 Year
  Sex: Male

DRUGS (1)
  1. LARIAM [Suspect]
     Indication: PRODUCT USED FOR UNKNOWN INDICATION
     Route: 065
     Dates: start: 20121015

REACTIONS (12)
  - Abdominal pain [Not Recovered/Not Resolved]
  - Anxiety [Not Recovered/Not Resolved]
  - Balance disorder [Not Recovered/Not Resolved]
  - Dyspnoea [Not Recovered/Not Resolved]
  - Disturbance in attention [Not Recovered/Not Resolved]
  - Headache [Not Recovered/Not Resolved]
  - Insomnia [Not Recovered/Not Resolved]
  - Malaise [Not Recovered/Not Resolved]
  - Myalgia [Not Recovered/Not Resolved]
  - Panic attack [Not Recovered/Not Resolved]
  - Speech disorder [Not Recovered/Not Resolved]
  - Gait disturbance [Not Recovered/Not Resolved]
